FAERS Safety Report 18475478 (Version 1)
Quarter: 2020Q4

REPORT INFORMATION
  Report Type: Report from Study
  Country: DE (occurrence: DE)
  Receive Date: 20201106
  Receipt Date: 20201106
  Transmission Date: 20210114
  Serious: Yes (Hospitalization)
  Sender: FDA-Public Use
  Company Number: DE-TAKEDA-DE202026232

PATIENT

DRUGS (16)
  1. HEPARIN [Concomitant]
     Active Substance: HEPARIN SODIUM
     Indication: COAGULOPATHY
  2. TEDUGLUTIDE [Suspect]
     Active Substance: TEDUGLUTIDE
     Dosage: 0.8 MILLIGRAM
     Route: 065
     Dates: start: 20171001
  3. ZINKOROT [Concomitant]
     Active Substance: ZINC OROTATE
     Indication: SUPPLEMENTATION THERAPY
  4. OMNITROPE [Concomitant]
     Active Substance: SOMATROPIN
     Indication: FAILURE TO THRIVE
  5. TEDUGLUTIDE [Suspect]
     Active Substance: TEDUGLUTIDE
     Dosage: 0.8 MILLIGRAM
     Route: 065
     Dates: start: 20171001
  6. OCTENISAN CLEANING [Concomitant]
     Indication: WOUND TREATMENT
  7. TEDUGLUTIDE [Suspect]
     Active Substance: TEDUGLUTIDE
     Indication: SHORT-BOWEL SYNDROME
     Dosage: 0.50 MILLIGRAM/KILOGRAM, 1X/DAY:QD
     Route: 065
     Dates: start: 20171001
  8. VITADRAL [Concomitant]
     Indication: VITAMIN A DEFICIENCY
  9. TEDUGLUTIDE [Suspect]
     Active Substance: TEDUGLUTIDE
     Indication: SHORT-BOWEL SYNDROME
     Dosage: 0.50 MILLIGRAM/KILOGRAM, 1X/DAY:QD
     Route: 065
     Dates: start: 20171001
  10. TEDUGLUTIDE [Suspect]
     Active Substance: TEDUGLUTIDE
     Indication: SHORT-BOWEL SYNDROME
     Dosage: 0.50 MILLIGRAM/KILOGRAM, 1X/DAY:QD
     Route: 065
     Dates: start: 20171001
  11. PRONTOSAN [POLIHEXANIDE] [Concomitant]
     Active Substance: POLIHEXANIDE
     Indication: WOUND
  12. CREON [Concomitant]
     Active Substance: PANCRELIPASE AMYLASE\PANCRELIPASE LIPASE\PANCRELIPASE PROTEASE
     Indication: PANCREATIC FAILURE
  13. TEDUGLUTIDE [Suspect]
     Active Substance: TEDUGLUTIDE
     Indication: SHORT-BOWEL SYNDROME
     Dosage: 0.50 MILLIGRAM/KILOGRAM, 1X/DAY:QD
     Route: 065
     Dates: start: 20171001
  14. FLUCLOXACILLIN [Concomitant]
     Active Substance: FLUCLOXACILLIN
     Indication: SEPSIS
  15. TEDUGLUTIDE [Suspect]
     Active Substance: TEDUGLUTIDE
     Dosage: 0.8 MILLIGRAM
     Route: 065
     Dates: start: 20171001
  16. TEDUGLUTIDE [Suspect]
     Active Substance: TEDUGLUTIDE
     Dosage: 0.8 MILLIGRAM
     Route: 065
     Dates: start: 20171001

REACTIONS (4)
  - Oedema [Recovered/Resolved]
  - Sepsis [Unknown]
  - Neutropenia [Recovered/Resolved]
  - Leukopenia [Recovered/Resolved]

NARRATIVE: CASE EVENT DATE: 20190829
